FAERS Safety Report 18962703 (Version 1)
Quarter: 2021Q1

REPORT INFORMATION
  Report Type: Spontaneous
  Country: US (occurrence: US)
  Receive Date: 20210303
  Receipt Date: 20210303
  Transmission Date: 20210420
  Serious: Yes (Hospitalization)
  Sender: FDA-Public Use
  Company Number: None

PATIENT
  Age: 35 Year
  Sex: Male
  Weight: 75.7 kg

DRUGS (6)
  1. METHOTREXATE 45MG [Suspect]
     Active Substance: METHOTREXATE
     Dates: end: 20210121
  2. CYTARABINE 2360MG [Suspect]
     Active Substance: CYTARABINE
     Dates: end: 20210207
  3. VINCRISTINE SULFATE 8MG [Suspect]
     Active Substance: VINCRISTINE SULFATE
     Dates: end: 20210218
  4. MERCAPTOPURINE 1600MG [Suspect]
     Active Substance: MERCAPTOPURINE
     Dates: end: 20210210
  5. CYCLOPHOSPHAMIDE 3900MG [Suspect]
     Active Substance: CYCLOPHOSPHAMIDE
     Dates: end: 20210128
  6. ONCASPAR [Suspect]
     Active Substance: PEGASPARGASE
     Dates: end: 20210211

REACTIONS (10)
  - Blood lactic acid abnormal [None]
  - Pharyngitis [None]
  - Vomiting [None]
  - Diarrhoea [None]
  - Lymphadenopathy [None]
  - Tonsillitis [None]
  - Pyrexia [None]
  - Malaise [None]
  - Nausea [None]
  - Pancytopenia [None]

NARRATIVE: CASE EVENT DATE: 20210218
